FAERS Safety Report 11089472 (Version 2)
Quarter: 2016Q2

REPORT INFORMATION
  Report Type: Report from Study
  Country: CO (occurrence: CO)
  Receive Date: 20150505
  Receipt Date: 20160622
  Transmission Date: 20160815
  Serious: Yes (Other)
  Sender: FDA-Public Use
  Company Number: CO-ROCHE-1342443

PATIENT
  Age: 45 Year
  Sex: Male

DRUGS (1)
  1. MYCOPHENOLATE MOFETIL. [Suspect]
     Active Substance: MYCOPHENOLATE MOFETIL
     Indication: PROPHYLAXIS AGAINST TRANSPLANT REJECTION
     Route: 048
     Dates: start: 20000809

REACTIONS (2)
  - Hepatitis C [Recovered/Resolved with Sequelae]
  - Pruritus allergic [Recovered/Resolved]

NARRATIVE: CASE EVENT DATE: 201004
